FAERS Safety Report 5356908-6 (Version None)
Quarter: 2007Q2

REPORT INFORMATION
  Report Type: 
  Country: None (occurrence: None)
  Receive Date: 20070614
  Receipt Date: 20061129
  Transmission Date: 20071010
  Serious: No
  Sender: FDA-Public Use
  Company Number: US-ASTRAZENECA-2006UW26564

PATIENT
  Age: 35 Year
  Sex: Female

DRUGS (1)
  1. ATACAND HCT [Suspect]
     Dosage: 32/12.5
     Route: 048

REACTIONS (4)
  - CARPAL TUNNEL SYNDROME [None]
  - DIABETES MELLITUS [None]
  - HYPERTENSION [None]
  - LYMPHOEDEMA [None]
